FAERS Safety Report 20196198 (Version 1)
Quarter: 2021Q4

REPORT INFORMATION
  Report Type: Spontaneous
  Country: US (occurrence: US)
  Receive Date: 20211216
  Receipt Date: 20211216
  Transmission Date: 20220304
  Serious: Yes (Death, Other)
  Sender: FDA-Public Use
  Company Number: US-LANTHEUS-LMI-2021-01487

PATIENT
  Age: 71 Year
  Sex: Male

DRUGS (1)
  1. DEFINITY [Suspect]
     Active Substance: PERFLUTREN
     Indication: Echocardiogram
     Dosage: 5 MILLILITRE (1.43 ML DEFINITY PREPARED IN 8 ML SALINE)
     Route: 042
     Dates: start: 20211125, end: 20211125

REACTIONS (3)
  - Death [Fatal]
  - Bradycardia [Unknown]
  - Cardiac arrest [Unknown]

NARRATIVE: CASE EVENT DATE: 20211125
